FAERS Safety Report 20028064 (Version 2)
Quarter: 2022Q1

REPORT INFORMATION
  Report Type: Report from Study
  Country: CA (occurrence: CA)
  Receive Date: 20211103
  Receipt Date: 20220117
  Transmission Date: 20220423
  Serious: Yes (Other)
  Sender: FDA-Public Use
  Company Number: CA-ABBVIE-21K-028-4144379-00

PATIENT
  Age: 66 Year
  Sex: Female
  Weight: 62 kg

DRUGS (3)
  1. HUMIRA [Suspect]
     Active Substance: ADALIMUMAB
     Indication: Psoriasis
     Route: 058
     Dates: start: 20160210
  2. ACETAMINOPHEN\OXYCODONE HYDROCHLORIDE [Concomitant]
     Active Substance: ACETAMINOPHEN\OXYCODONE HYDROCHLORIDE
     Indication: Product used for unknown indication
  3. NAPROXEN [Concomitant]
     Active Substance: NAPROXEN
     Indication: Product used for unknown indication

REACTIONS (5)
  - Clavicle fracture [Recovered/Resolved]
  - Rib fracture [Unknown]
  - Open reduction of fracture [Unknown]
  - Rash [Unknown]
  - Fall [Unknown]

NARRATIVE: CASE EVENT DATE: 20210801
